FAERS Safety Report 4741621-6 (Version None)
Quarter: 2005Q3

REPORT INFORMATION
  Report Type: 
  Country: None (occurrence: None)
  Receive Date: 20050801
  Receipt Date: 20050624
  Transmission Date: 20060218
  Serious: No
  Sender: FDA-Public Use
  Company Number: 2005PV000137

PATIENT
  Age: 49 Year
  Sex: Female
  Weight: 99.7913 kg

DRUGS (3)
  1. BYETTA [Suspect]
     Indication: DIABETES MELLITUS NON-INSULIN-DEPENDENT
     Dosage: 5 UG; BID; SC
     Route: 058
     Dates: start: 20050614
  2. GLIPIZIDE [Concomitant]
  3. ZOLOFT [Concomitant]

REACTIONS (6)
  - BLOOD GLUCOSE DECREASED [None]
  - COUGH [None]
  - NAUSEA [None]
  - PNEUMONIA [None]
  - TREMOR [None]
  - UPPER RESPIRATORY TRACT INFECTION [None]
